FAERS Safety Report 26000838 (Version 1)
Quarter: 2025Q4

REPORT INFORMATION
  Report Type: Spontaneous
  Country: US (occurrence: US)
  Receive Date: 20251105
  Receipt Date: 20251105
  Transmission Date: 20260118
  Serious: No
  Sender: ANI
  Company Number: US-ANIPHARMA-2025-US-042626

PATIENT
  Sex: Female
  Weight: 85.28 kg

DRUGS (13)
  1. BUMETANIDE [Concomitant]
     Active Substance: BUMETANIDE
  2. ALLOPURINOL [Concomitant]
     Active Substance: ALLOPURINOL
  3. DOXAZOSIN MESYLATE [Concomitant]
     Active Substance: DOXAZOSIN MESYLATE
  4. ATORVASTATIN CALCIUM [Concomitant]
     Active Substance: ATORVASTATIN CALCIUM
  5. PREDNISONE [Concomitant]
     Active Substance: PREDNISONE
  6. POTASSIUM CHLORIDE [Concomitant]
     Active Substance: POTASSIUM CHLORIDE
  7. VITAMINS [Concomitant]
     Active Substance: VITAMINS
  8. VITAMIN D3 [Concomitant]
     Active Substance: CHOLECALCIFEROL
  9. HYDROCHLOROTHIAZIDE [Concomitant]
     Active Substance: HYDROCHLOROTHIAZIDE
  10. OLMESARTAN MEDOXOMIL [Concomitant]
     Active Substance: OLMESARTAN MEDOXOMIL
  11. ELIQUIS [Concomitant]
     Active Substance: APIXABAN
  12. METOLAZONE [Concomitant]
     Active Substance: METOLAZONE
  13. CORTICOTROPIN [Suspect]
     Active Substance: CORTICOTROPIN
     Indication: Optic neuritis
     Dosage: INJECT 1 ML ( 80 UNITS)  TWICE A WEEK
     Route: 058

REACTIONS (1)
  - Chills [Unknown]
